FAERS Safety Report 10207503 (Version 1)
Quarter: 2014Q2

REPORT INFORMATION
  Report Type: Spontaneous
  Country: FR (occurrence: FR)
  Receive Date: 20140530
  Receipt Date: 20140530
  Transmission Date: 20141212
  Serious: Yes (Hospitalization)
  Sender: FDA-Public Use
  Company Number: FR-JNJFOC-20140515690

PATIENT
  Age: 53 Year
  Sex: Male

DRUGS (3)
  1. IXPRIM [Suspect]
     Indication: OCCIPITAL NEURALGIA
     Route: 048
     Dates: end: 20131118
  2. IXPRIM [Suspect]
     Indication: OCCIPITAL NEURALGIA
     Route: 048
     Dates: start: 201305, end: 20131118
  3. LYRICA [Concomitant]
     Indication: OCCIPITAL NEURALGIA
     Route: 048

REACTIONS (4)
  - Mental disorder [Not Recovered/Not Resolved]
  - Delirium [Not Recovered/Not Resolved]
  - Drug abuse [Recovered/Resolved]
  - Intentional overdose [Recovered/Resolved]
